FAERS Safety Report 19460430 (Version 2)
Quarter: 2021Q3

REPORT INFORMATION
  Report Type: Spontaneous
  Country: CA (occurrence: CA)
  Receive Date: 20210625
  Receipt Date: 20210701
  Transmission Date: 20211014
  Serious: Yes (Other)
  Sender: FDA-Public Use
  Company Number: CA-ASTRAZENECA-2021A549891

PATIENT
  Age: 26281 Day
  Sex: Female

DRUGS (5)
  1. LYNPARZA [Suspect]
     Active Substance: OLAPARIB
     Indication: ILL-DEFINED DISORDER
     Dosage: UNKNOWN
     Route: 048
     Dates: start: 201901
  2. LYNPARZA [Suspect]
     Active Substance: OLAPARIB
     Indication: ILL-DEFINED DISORDER
     Dosage: UNKNOWN
     Route: 048
     Dates: start: 201602
  3. MULTIVITAMIN [Concomitant]
     Active Substance: VITAMINS
  4. VITAMIN C [Concomitant]
     Active Substance: ASCORBIC ACID
  5. LYNPARZA [Suspect]
     Active Substance: OLAPARIB
     Indication: ILL-DEFINED DISORDER
     Dosage: UNKNOWN
     Route: 048
     Dates: start: 20160826, end: 20210526

REACTIONS (2)
  - Acute myeloid leukaemia [Not Recovered/Not Resolved]
  - Malignant neoplasm progression [Unknown]

NARRATIVE: CASE EVENT DATE: 20210603
